FAERS Safety Report 4927528-X (Version None)
Quarter: 2006Q1

REPORT INFORMATION
  Report Type: 
  Country: None (occurrence: None)
  Receive Date: 20060228
  Receipt Date: 20050419
  Transmission Date: 20060701
  Serious: Yes (Hospitalization, Other)
  Sender: FDA-Public Use
  Company Number: US-MERCK-0504USA03802

PATIENT
  Age: 68 Year
  Sex: Female
  Weight: 109 kg

DRUGS (16)
  1. ELAVIL [Concomitant]
     Route: 065
  2. AVAPRO [Concomitant]
     Route: 065
  3. LORTAB [Concomitant]
     Route: 065
  4. HUMULIN [Concomitant]
     Route: 058
  5. TOPROL-XL [Concomitant]
     Route: 065
  6. VIOXX [Suspect]
     Indication: ARTHRITIS
     Route: 048
     Dates: start: 19990101
  7. VIOXX [Suspect]
     Route: 048
     Dates: start: 20030615
  8. VIOXX [Suspect]
     Route: 048
     Dates: start: 20021114, end: 20030915
  9. LASIX [Concomitant]
     Route: 065
  10. POTASSIUM CHLORIDE [Concomitant]
     Route: 065
  11. ZOLOFT [Concomitant]
     Route: 065
  12. FLEXERIL [Concomitant]
     Route: 065
  13. GLUCOPHAGE [Concomitant]
     Route: 065
  14. HYDROCHLOROTHIAZIDE [Concomitant]
     Route: 065
  15. NEURONTIN [Concomitant]
     Route: 065
  16. ZOCOR [Concomitant]
     Route: 065

REACTIONS (40)
  - ABDOMINAL PAIN LOWER [None]
  - ACUTE CORONARY SYNDROME [None]
  - ARTERIOSCLEROSIS CORONARY ARTERY [None]
  - BREAST DISORDER [None]
  - BRONCHITIS ACUTE [None]
  - BUNDLE BRANCH BLOCK LEFT [None]
  - CARDIAC DISORDER [None]
  - CARDIAC FAILURE CONGESTIVE [None]
  - CARDIOMEGALY [None]
  - CARPAL TUNNEL SYNDROME [None]
  - CEREBROVASCULAR ACCIDENT [None]
  - CHEST DISCOMFORT [None]
  - CHEST PAIN [None]
  - CHRONIC OBSTRUCTIVE PULMONARY DISEASE [None]
  - CORONARY ARTERY DISEASE [None]
  - DIABETES MELLITUS NON-INSULIN-DEPENDENT [None]
  - DIVERTICULUM [None]
  - GALLBLADDER DISORDER [None]
  - GASTRIC DISORDER [None]
  - GASTRIC NEOPLASM [None]
  - GASTRIC ULCER [None]
  - HYPERLIPIDAEMIA [None]
  - HYPONATRAEMIA [None]
  - HYPOTHYROIDISM [None]
  - HYSTERECTOMY [None]
  - IMPAIRED GASTRIC EMPTYING [None]
  - INSOMNIA [None]
  - MITRAL VALVE INCOMPETENCE [None]
  - MYOCARDIAL INFARCTION [None]
  - NEOPLASM [None]
  - PEPTIC ULCER [None]
  - PERICARDITIS CONSTRICTIVE [None]
  - PLEURITIC PAIN [None]
  - PNEUMONIA [None]
  - PRODUCTIVE COUGH [None]
  - PYREXIA [None]
  - RENAL FAILURE ACUTE [None]
  - SPUTUM DISCOLOURED [None]
  - ULCER HAEMORRHAGE [None]
  - UPPER GASTROINTESTINAL HAEMORRHAGE [None]
